FAERS Safety Report 10240612 (Version 1)
Quarter: 2014Q2

REPORT INFORMATION
  Report Type: Spontaneous
  Country: US (occurrence: US)
  Receive Date: 20140617
  Receipt Date: 20140617
  Transmission Date: 20141212
  Serious: No
  Sender: FDA-Public Use
  Company Number: US-ASTRAZENECA-2014SE39669

PATIENT
  Age: 74 Year
  Sex: Female
  Weight: 70.3 kg

DRUGS (2)
  1. SYMBICORT [Suspect]
     Indication: CHRONIC OBSTRUCTIVE PULMONARY DISEASE
     Dosage: 160/4.5  2 PUFFS BID
     Route: 055
     Dates: start: 201403
  2. SPRIRIVA [Concomitant]
     Indication: PROPHYLAXIS
     Dosage: 18MCG CAPSULE DAILY
     Route: 055
     Dates: start: 201405

REACTIONS (2)
  - Dyspnoea [Recovered/Resolved]
  - Device misuse [Not Recovered/Not Resolved]
